FAERS Safety Report 8668404 (Version 4)
Quarter: 2013Q4

REPORT INFORMATION
  Report Type: Spontaneous
  Country: FR (occurrence: FR)
  Receive Date: 20120717
  Receipt Date: 20131105
  Transmission Date: 20140711
  Serious: Yes (Hospitalization)
  Sender: FDA-Public Use
  Company Number: FR-009507513-1207FRA004835

PATIENT
  Age: 27 Year
  Sex: Female
  Weight: 66 kg

DRUGS (8)
  1. XELEVIA [Suspect]
     Dosage: 700 MG, QD
     Route: 048
     Dates: start: 20120611, end: 20120611
  2. GLUCOPHAGE [Suspect]
     Dosage: 7 G, QD
     Route: 048
     Dates: start: 20120611, end: 20120611
  3. AMLOR [Suspect]
     Dosage: 35 MG, UNK
     Route: 048
     Dates: start: 20120611, end: 20120611
  4. MINIPRESS [Suspect]
     Dosage: 25 MG, QD
     Route: 048
     Dates: start: 20120611, end: 20120611
  5. ZOLOFT [Suspect]
     Dosage: 7 DF, QD
     Route: 048
     Dates: start: 20120611, end: 20120611
  6. AMAREL [Suspect]
     Dosage: 28 MG, QD
     Route: 048
     Dates: start: 20120611, end: 20120611
  7. LIPANOR [Suspect]
     Dosage: 700 MG, QD
     Route: 048
     Dates: start: 20120611, end: 20120611
  8. CO-RENITEC [Suspect]
     Dosage: 7 DF, QD
     Route: 048
     Dates: start: 20120611, end: 20120611

REACTIONS (4)
  - Metabolic acidosis [Recovered/Resolved]
  - Toxicity to various agents [Recovered/Resolved]
  - Hypoglycaemia [Recovered/Resolved]
  - Intentional overdose [Recovered/Resolved]
